FAERS Safety Report 8232405-5 (Version None)
Quarter: 2012Q1

REPORT INFORMATION
  Report Type: 
  Country: None (occurrence: None)
  Receive Date: 20120323
  Receipt Date: 20111202
  Transmission Date: 20120608
  Serious: Yes (Hospitalization)
  Sender: FDA-Public Use
  Company Number: AU-GLAXOSMITHKLINE-Z0013143A

PATIENT
  Sex: Female
  Weight: 63 kg

DRUGS (4)
  1. ESCITALOPRAM [Concomitant]
  2. VOTRIENT [Suspect]
     Indication: OVARIAN CANCER
     Dosage: 800MG PER DAY
     Route: 048
     Dates: start: 20100622
  3. VITAMIN B COMPLEX CAP [Concomitant]
  4. MULTI-VITAMINS [Concomitant]

REACTIONS (1)
  - HAEMANGIOMA [None]
